FAERS Safety Report 6120396-2 (Version None)
Quarter: 2009Q1

REPORT INFORMATION
  Report Type: 
  Country: None (occurrence: None)
  Receive Date: 20090317
  Receipt Date: 20090305
  Transmission Date: 20090719
  Serious: No
  Sender: FDA-Public Use
  Company Number: PHHY2009JP07847

PATIENT
  Age: 29 Year
  Sex: Male

DRUGS (2)
  1. TASIGNA [Suspect]
     Indication: CHRONIC MYELOID LEUKAEMIA
     Dosage: 800 MG, QD
     Route: 048
     Dates: start: 20090219, end: 20090304
  2. VINCRISTINE SULFATE [Concomitant]
     Indication: CHRONIC MYELOID LEUKAEMIA
     Dosage: UNK
     Dates: end: 20090304

REACTIONS (4)
  - ELECTROCARDIOGRAM QT PROLONGED [None]
  - FACE OEDEMA [None]
  - RASH [None]
  - WHITE BLOOD CELL COUNT INCREASED [None]
